FAERS Safety Report 9731283 (Version 1)
Quarter: 2013Q4

REPORT INFORMATION
  Report Type: Report from Study
  Country: UG (occurrence: UG)
  Receive Date: 20131203
  Receipt Date: 20131203
  Transmission Date: 20140711
  Serious: Yes (Life-Threatening, Hospitalization)
  Sender: FDA-Public Use
  Company Number: UG-BRISTOL-MYERS SQUIBB COMPANY-19873165

PATIENT
  Age: 33 Year
  Sex: Male

DRUGS (8)
  1. EFAVIRENZ TABS [Suspect]
     Indication: HIV INFECTION
     Route: 048
     Dates: start: 20131002, end: 20131021
  2. RALTEGRAVIR [Suspect]
     Indication: HIV INFECTION
     Route: 048
     Dates: start: 20131002, end: 20131021
  3. LAMIVUDINE [Suspect]
     Route: 048
     Dates: start: 20131002, end: 20131021
  4. ZIDOVUDINE [Suspect]
     Route: 048
     Dates: start: 20131002, end: 20131021
  5. ISONIAZID [Suspect]
     Dates: start: 20130916
  6. RIFAMPIN [Concomitant]
     Dates: start: 20130916
  7. ETHAMBUTOL HCL [Concomitant]
     Dates: start: 20130916
  8. PYRAZINAMIDE [Concomitant]
     Dates: start: 20130916

REACTIONS (4)
  - Hepatomegaly [Recovered/Resolved]
  - Aspartate aminotransferase increased [Recovered/Resolved]
  - Alanine aminotransferase increased [Recovered/Resolved]
  - Blood bilirubin increased [Recovered/Resolved]
